FAERS Safety Report 25871485 (Version 1)
Quarter: 2025Q4

REPORT INFORMATION
  Report Type: Spontaneous
  Country: EU (occurrence: EU)
  Receive Date: 20251001
  Receipt Date: 20251001
  Transmission Date: 20260118
  Serious: Yes (Other)
  Sender: MYLAN
  Company Number: EU-EMB-M202407486-1

PATIENT
  Sex: Male
  Weight: 2.7 kg

DRUGS (56)
  1. ACETAMINOPHEN [4]
     Active Substance: ACETAMINOPHEN
     Indication: COVID-19
     Dosage: UNK, ACTUAL MEDICATION INTAKE UNCLEAR, EVENTUALLY AROUND GW 11
  2. ACETAMINOPHEN [4]
     Active Substance: ACETAMINOPHEN
     Dosage: UNK, ACTUAL MEDICATION INTAKE UNCLEAR, EVENTUALLY AROUND GW 11
  3. ACETAMINOPHEN [4]
     Active Substance: ACETAMINOPHEN
     Dosage: UNK, ACTUAL MEDICATION INTAKE UNCLEAR, EVENTUALLY AROUND GW 11
     Route: 065
  4. ACETAMINOPHEN [4]
     Active Substance: ACETAMINOPHEN
     Dosage: UNK, ACTUAL MEDICATION INTAKE UNCLEAR, EVENTUALLY AROUND GW 11
     Route: 065
  5. ACETAMINOPHEN [4]
     Active Substance: ACETAMINOPHEN
     Dosage: UNK, ACTUAL MEDICATION INTAKE UNCLEAR, EVENTUALLY AROUND GW 11
  6. ACETAMINOPHEN [4]
     Active Substance: ACETAMINOPHEN
     Dosage: UNK, ACTUAL MEDICATION INTAKE UNCLEAR, EVENTUALLY AROUND GW 11
  7. ACETAMINOPHEN [4]
     Active Substance: ACETAMINOPHEN
     Dosage: UNK, ACTUAL MEDICATION INTAKE UNCLEAR, EVENTUALLY AROUND GW 11
     Route: 065
  8. ACETAMINOPHEN [4]
     Active Substance: ACETAMINOPHEN
     Dosage: UNK, ACTUAL MEDICATION INTAKE UNCLEAR, EVENTUALLY AROUND GW 11
     Route: 065
  9. XOLAIR [Suspect]
     Active Substance: OMALIZUMAB
     Indication: Asthma
     Dosage: UNK UNK, MONTHLY, 300-450 MG PER MONTH, UNTIL GW 25
     Dates: start: 202406, end: 202412
  10. XOLAIR [Suspect]
     Active Substance: OMALIZUMAB
     Dosage: UNK UNK, MONTHLY, 300-450 MG PER MONTH, UNTIL GW 25
     Dates: start: 202406, end: 202412
  11. XOLAIR [Suspect]
     Active Substance: OMALIZUMAB
     Dosage: UNK UNK, MONTHLY, 300-450 MG PER MONTH, UNTIL GW 25
     Route: 064
     Dates: start: 202406, end: 202412
  12. XOLAIR [Suspect]
     Active Substance: OMALIZUMAB
     Dosage: UNK UNK, MONTHLY, 300-450 MG PER MONTH, UNTIL GW 25
     Route: 064
     Dates: start: 202406, end: 202412
  13. XOLAIR [Suspect]
     Active Substance: OMALIZUMAB
     Dosage: UNK UNK, MONTHLY, 300-450 MG PER MONTH, UNTIL GW 25
     Dates: start: 202406, end: 202412
  14. XOLAIR [Suspect]
     Active Substance: OMALIZUMAB
     Dosage: UNK UNK, MONTHLY, 300-450 MG PER MONTH, UNTIL GW 25
     Dates: start: 202406, end: 202412
  15. XOLAIR [Suspect]
     Active Substance: OMALIZUMAB
     Dosage: UNK UNK, MONTHLY, 300-450 MG PER MONTH, UNTIL GW 25
     Route: 064
     Dates: start: 202406, end: 202412
  16. XOLAIR [Suspect]
     Active Substance: OMALIZUMAB
     Dosage: UNK UNK, MONTHLY, 300-450 MG PER MONTH, UNTIL GW 25
     Route: 064
     Dates: start: 202406, end: 202412
  17. BOOSTRIX [Concomitant]
     Active Substance: TETANUS TOXOID, REDUCED DIPHTHERIA TOXOID AND ACELLULAR PERTUSSIS VACCINE ADSORBED, TDAP
     Indication: Immunisation
     Dosage: UNK
  18. BOOSTRIX [Concomitant]
     Active Substance: TETANUS TOXOID, REDUCED DIPHTHERIA TOXOID AND ACELLULAR PERTUSSIS VACCINE ADSORBED, TDAP
     Dosage: UNK
  19. BOOSTRIX [Concomitant]
     Active Substance: TETANUS TOXOID, REDUCED DIPHTHERIA TOXOID AND ACELLULAR PERTUSSIS VACCINE ADSORBED, TDAP
     Dosage: UNK
     Route: 064
  20. BOOSTRIX [Concomitant]
     Active Substance: TETANUS TOXOID, REDUCED DIPHTHERIA TOXOID AND ACELLULAR PERTUSSIS VACCINE ADSORBED, TDAP
     Dosage: UNK
     Route: 064
  21. BOOSTRIX [Concomitant]
     Active Substance: TETANUS TOXOID, REDUCED DIPHTHERIA TOXOID AND ACELLULAR PERTUSSIS VACCINE ADSORBED, TDAP
     Dosage: UNK
  22. BOOSTRIX [Concomitant]
     Active Substance: TETANUS TOXOID, REDUCED DIPHTHERIA TOXOID AND ACELLULAR PERTUSSIS VACCINE ADSORBED, TDAP
     Dosage: UNK
  23. BOOSTRIX [Concomitant]
     Active Substance: TETANUS TOXOID, REDUCED DIPHTHERIA TOXOID AND ACELLULAR PERTUSSIS VACCINE ADSORBED, TDAP
     Dosage: UNK
     Route: 064
  24. BOOSTRIX [Concomitant]
     Active Substance: TETANUS TOXOID, REDUCED DIPHTHERIA TOXOID AND ACELLULAR PERTUSSIS VACCINE ADSORBED, TDAP
     Dosage: UNK
     Route: 064
  25. PREDNISOLONE [Concomitant]
     Active Substance: PREDNISOLONE
     Indication: Chronic spontaneous urticaria
     Dosage: 7 MILLIGRAM, QD, DAILY DOSAGE: 5 MG - 0 - 2 MG, UNTIL APPROXIMATELY GW 9
  26. PREDNISOLONE [Concomitant]
     Active Substance: PREDNISOLONE
     Dosage: 7 MILLIGRAM, QD, DAILY DOSAGE: 5 MG - 0 - 2 MG, UNTIL APPROXIMATELY GW 9
  27. PREDNISOLONE [Concomitant]
     Active Substance: PREDNISOLONE
     Dosage: 7 MILLIGRAM, QD, DAILY DOSAGE: 5 MG - 0 - 2 MG, UNTIL APPROXIMATELY GW 9
     Route: 064
  28. PREDNISOLONE [Concomitant]
     Active Substance: PREDNISOLONE
     Dosage: 7 MILLIGRAM, QD, DAILY DOSAGE: 5 MG - 0 - 2 MG, UNTIL APPROXIMATELY GW 9
     Route: 064
  29. PREDNISOLONE [Concomitant]
     Active Substance: PREDNISOLONE
     Dosage: 7 MILLIGRAM, QD, DAILY DOSAGE: 5 MG - 0 - 2 MG, UNTIL APPROXIMATELY GW 9
  30. PREDNISOLONE [Concomitant]
     Active Substance: PREDNISOLONE
     Dosage: 7 MILLIGRAM, QD, DAILY DOSAGE: 5 MG - 0 - 2 MG, UNTIL APPROXIMATELY GW 9
  31. PREDNISOLONE [Concomitant]
     Active Substance: PREDNISOLONE
     Dosage: 7 MILLIGRAM, QD, DAILY DOSAGE: 5 MG - 0 - 2 MG, UNTIL APPROXIMATELY GW 9
     Route: 064
  32. PREDNISOLONE [Concomitant]
     Active Substance: PREDNISOLONE
     Dosage: 7 MILLIGRAM, QD, DAILY DOSAGE: 5 MG - 0 - 2 MG, UNTIL APPROXIMATELY GW 9
     Route: 064
  33. LEVOTHYROXINE SODIUM [Concomitant]
     Active Substance: LEVOTHYROXINE SODIUM
     Indication: Thyroid hormone replacement therapy
     Dosage: UNK UNK, QD, DOSAGE INCREASED DURING PREGNANCY 100?G/D--}125?G/D (FROM AT LEAST GW 5 ONWARDS)--}137?G/D
     Dates: start: 202406, end: 202503
  34. LEVOTHYROXINE SODIUM [Concomitant]
     Active Substance: LEVOTHYROXINE SODIUM
     Dosage: UNK UNK, QD, DOSAGE INCREASED DURING PREGNANCY 100?G/D--}125?G/D (FROM AT LEAST GW 5 ONWARDS)--}137?G/D
     Dates: start: 202406, end: 202503
  35. LEVOTHYROXINE SODIUM [Concomitant]
     Active Substance: LEVOTHYROXINE SODIUM
     Dosage: UNK UNK, QD, DOSAGE INCREASED DURING PREGNANCY 100?G/D--}125?G/D (FROM AT LEAST GW 5 ONWARDS)--}137?G/D
     Route: 064
     Dates: start: 202406, end: 202503
  36. LEVOTHYROXINE SODIUM [Concomitant]
     Active Substance: LEVOTHYROXINE SODIUM
     Dosage: UNK UNK, QD, DOSAGE INCREASED DURING PREGNANCY 100?G/D--}125?G/D (FROM AT LEAST GW 5 ONWARDS)--}137?G/D
     Route: 064
     Dates: start: 202406, end: 202503
  37. LEVOTHYROXINE SODIUM [Concomitant]
     Active Substance: LEVOTHYROXINE SODIUM
     Dosage: UNK UNK, QD, DOSAGE INCREASED DURING PREGNANCY 100?G/D--}125?G/D (FROM AT LEAST GW 5 ONWARDS)--}137?G/D
     Dates: start: 202406, end: 202503
  38. LEVOTHYROXINE SODIUM [Concomitant]
     Active Substance: LEVOTHYROXINE SODIUM
     Dosage: UNK UNK, QD, DOSAGE INCREASED DURING PREGNANCY 100?G/D--}125?G/D (FROM AT LEAST GW 5 ONWARDS)--}137?G/D
     Dates: start: 202406, end: 202503
  39. LEVOTHYROXINE SODIUM [Concomitant]
     Active Substance: LEVOTHYROXINE SODIUM
     Dosage: UNK UNK, QD, DOSAGE INCREASED DURING PREGNANCY 100?G/D--}125?G/D (FROM AT LEAST GW 5 ONWARDS)--}137?G/D
     Route: 064
     Dates: start: 202406, end: 202503
  40. LEVOTHYROXINE SODIUM [Concomitant]
     Active Substance: LEVOTHYROXINE SODIUM
     Dosage: UNK UNK, QD, DOSAGE INCREASED DURING PREGNANCY 100?G/D--}125?G/D (FROM AT LEAST GW 5 ONWARDS)--}137?G/D
     Route: 064
     Dates: start: 202406, end: 202503
  41. VAXIGRIPTETRA [Concomitant]
     Active Substance: INFLUENZA VIRUS VACCINE QUADRIVALENT TYPE A+B
     Indication: Immunisation
     Dosage: UNK
  42. VAXIGRIPTETRA [Concomitant]
     Active Substance: INFLUENZA VIRUS VACCINE QUADRIVALENT TYPE A+B
     Dosage: UNK
  43. VAXIGRIPTETRA [Concomitant]
     Active Substance: INFLUENZA VIRUS VACCINE QUADRIVALENT TYPE A+B
     Dosage: UNK
     Route: 064
  44. VAXIGRIPTETRA [Concomitant]
     Active Substance: INFLUENZA VIRUS VACCINE QUADRIVALENT TYPE A+B
     Dosage: UNK
     Route: 064
  45. VAXIGRIPTETRA [Concomitant]
     Active Substance: INFLUENZA VIRUS VACCINE QUADRIVALENT TYPE A+B
     Dosage: UNK
  46. VAXIGRIPTETRA [Concomitant]
     Active Substance: INFLUENZA VIRUS VACCINE QUADRIVALENT TYPE A+B
     Dosage: UNK
  47. VAXIGRIPTETRA [Concomitant]
     Active Substance: INFLUENZA VIRUS VACCINE QUADRIVALENT TYPE A+B
     Dosage: UNK
     Route: 064
  48. VAXIGRIPTETRA [Concomitant]
     Active Substance: INFLUENZA VIRUS VACCINE QUADRIVALENT TYPE A+B
     Dosage: UNK
     Route: 064
  49. CETIRIZINE [Concomitant]
     Active Substance: CETIRIZINE HYDROCHLORIDE
     Indication: Chronic spontaneous urticaria
     Dosage: 10 MILLIGRAM, QID, UNTIL APPROXIMATELY GW 14
  50. CETIRIZINE [Concomitant]
     Active Substance: CETIRIZINE HYDROCHLORIDE
     Dosage: 10 MILLIGRAM, QID, UNTIL APPROXIMATELY GW 14
  51. CETIRIZINE [Concomitant]
     Active Substance: CETIRIZINE HYDROCHLORIDE
     Dosage: 10 MILLIGRAM, QID, UNTIL APPROXIMATELY GW 14
     Route: 064
  52. CETIRIZINE [Concomitant]
     Active Substance: CETIRIZINE HYDROCHLORIDE
     Dosage: 10 MILLIGRAM, QID, UNTIL APPROXIMATELY GW 14
     Route: 064
  53. CETIRIZINE [Concomitant]
     Active Substance: CETIRIZINE HYDROCHLORIDE
     Dosage: 10 MILLIGRAM, QID, UNTIL APPROXIMATELY GW 14
  54. CETIRIZINE [Concomitant]
     Active Substance: CETIRIZINE HYDROCHLORIDE
     Dosage: 10 MILLIGRAM, QID, UNTIL APPROXIMATELY GW 14
  55. CETIRIZINE [Concomitant]
     Active Substance: CETIRIZINE HYDROCHLORIDE
     Dosage: 10 MILLIGRAM, QID, UNTIL APPROXIMATELY GW 14
     Route: 064
  56. CETIRIZINE [Concomitant]
     Active Substance: CETIRIZINE HYDROCHLORIDE
     Dosage: 10 MILLIGRAM, QID, UNTIL APPROXIMATELY GW 14
     Route: 064

REACTIONS (2)
  - Small for dates baby [Recovered/Resolved]
  - Foetal exposure during pregnancy [Unknown]
